FAERS Safety Report 13681057 (Version 1)
Quarter: 2017Q2

REPORT INFORMATION
  Report Type: Spontaneous
  Country: JP (occurrence: JP)
  Receive Date: 20170623
  Receipt Date: 20170623
  Transmission Date: 20170830
  Serious: Yes (Hospitalization, Other)
  Sender: FDA-Public Use
  Company Number: JP-MACLEODS PHARMACEUTICALS US LTD-MAC2017005253

PATIENT

DRUGS (4)
  1. AMLODIPINE BESYLATE. [Suspect]
     Active Substance: AMLODIPINE BESYLATE
     Indication: IDIOPATHIC INTRACRANIAL HYPERTENSION
     Dosage: 10 MG, QD
     Route: 048
  2. OLMESARTAN 20MG SUN [Suspect]
     Active Substance: OLMESARTAN
     Indication: IDIOPATHIC INTRACRANIAL HYPERTENSION
     Dosage: 20 MG, QD
     Route: 048
  3. NICARDIPINE [Suspect]
     Active Substance: NICARDIPINE
     Indication: IDIOPATHIC INTRACRANIAL HYPERTENSION
     Dosage: 2 MG/HR
     Route: 042
  4. AMLODIPINE BESYLATE. [Suspect]
     Active Substance: AMLODIPINE BESYLATE
     Dosage: 5 MG, QD
     Route: 048

REACTIONS (7)
  - Blood creatinine increased [Recovered/Resolved]
  - Renin increased [Recovered/Resolved]
  - Blood aldosterone increased [Recovered/Resolved]
  - Hyponatraemia [Recovered/Resolved]
  - Acute kidney injury [Recovered/Resolved]
  - Blood urea increased [Recovered/Resolved]
  - Hypokalaemia [Recovered/Resolved]
